FAERS Safety Report 16404622 (Version 1)
Quarter: 2019Q2

REPORT INFORMATION
  Report Type: Spontaneous
  Country: GB (occurrence: GB)
  Receive Date: 20190607
  Receipt Date: 20190607
  Transmission Date: 20190711
  Serious: Yes (Hospitalization)
  Sender: FDA-Public Use
  Company Number: GB-TORRENT-00002740

PATIENT
  Age: 56 Year
  Sex: Male

DRUGS (2)
  1. RASAGILINE. [Concomitant]
     Active Substance: RASAGILINE
     Indication: PRODUCT USED FOR UNKNOWN INDICATION
     Dosage: UNKNOWN
  2. PRAMIPEXOLE. [Suspect]
     Active Substance: PRAMIPEXOLE
     Indication: PARKINSON^S DISEASE
     Route: 048

REACTIONS (4)
  - Impulse-control disorder [Recovering/Resolving]
  - Obsessive-compulsive personality disorder [Recovering/Resolving]
  - Personality change [Recovering/Resolving]
  - Impulsive behaviour [Recovering/Resolving]
